FAERS Safety Report 9720732 (Version 2)
Quarter: 2013Q4

REPORT INFORMATION
  Report Type: Report from Study
  Country: HU (occurrence: HU)
  Receive Date: 20131129
  Receipt Date: 20131227
  Transmission Date: 20140711
  Serious: Yes (Other)
  Sender: FDA-Public Use
  Company Number: HU-ROCHE-1311721

PATIENT
  Age: 57 Year
  Sex: Female
  Weight: 102 kg

DRUGS (7)
  1. OMALIZUMAB [Suspect]
     Indication: ASTHMA
     Route: 065
     Dates: start: 20130628
  2. OMALIZUMAB [Suspect]
     Route: 065
     Dates: start: 20131010, end: 20131010
  3. MEDROL [Concomitant]
     Route: 065
     Dates: start: 2013
  4. THEOSPIREX [Concomitant]
     Route: 065
     Dates: start: 2012
  5. BERODUAL N [Concomitant]
     Route: 065
     Dates: start: 2012
  6. SINGULAIR [Concomitant]
     Route: 065
     Dates: start: 2012
  7. SYMBICORT [Concomitant]

REACTIONS (4)
  - Psychotic disorder [Unknown]
  - Tongue blistering [Recovering/Resolving]
  - Hypoaesthesia [Recovering/Resolving]
  - Fear [Unknown]
